FAERS Safety Report 22156435 (Version 3)
Quarter: 2023Q2

REPORT INFORMATION
  Report Type: Report from Study
  Country: CN (occurrence: None)
  Receive Date: 20230330
  Receipt Date: 20230410
  Transmission Date: 20230721
  Serious: Yes (Hospitalization)
  Sender: FDA-Public Use
  Company Number: CN-ROCHE-3317679

PATIENT
  Age: 40 Year
  Sex: Male
  Weight: 68 kg

DRUGS (4)
  1. ATEZOLIZUMAB [Suspect]
     Active Substance: ATEZOLIZUMAB
     Indication: Oesophageal adenocarcinoma
     Dosage: DOSE LAST STUDY DRUG ADMIN PRIOR AE WAS 1200 MG?ON 03/FEB/2023, HE RECEIVED MOST RECENT DOSE OF ATEZ
     Route: 041
     Dates: start: 20220630
  2. CAPECITABINE [Suspect]
     Active Substance: CAPECITABINE
     Indication: Oesophageal adenocarcinoma
     Dosage: DOSE LAST STUDY DRUG ADMIN PRIOR AE IS 3500 MG?28/OCT/2022, START DATE AND END DATE OF MOST RECENT D
     Route: 048
     Dates: start: 20220630
  3. TIRAGOLUMAB [Suspect]
     Active Substance: TIRAGOLUMAB
     Indication: Oesophageal adenocarcinoma
     Dosage: DOSE LAST STUDY DRUG ADMIN PRIOR AE IS 600 MG?START DATE OF MOST RECENT DOSE OF STUDY DRUG PRIOR TO
     Route: 042
     Dates: start: 20220630
  4. OXALIPLATIN [Suspect]
     Active Substance: OXALIPLATIN
     Indication: Oesophageal adenocarcinoma
     Dosage: DOSE LAST STUDY DRUG ADMIN PRIOR AE IS 230 MG?START DATE OF MOST RECENT DOSE OF STUDY DRUG PRIOR TO
     Route: 042
     Dates: start: 20220630

REACTIONS (1)
  - Pneumonia [Recovering/Resolving]

NARRATIVE: CASE EVENT DATE: 20230224
